FAERS Safety Report 8372777-4 (Version None)
Quarter: 2012Q2

REPORT INFORMATION
  Report Type: 
  Country: None (occurrence: None)
  Receive Date: 20120521
  Receipt Date: 20120515
  Transmission Date: 20120825
  Serious: Yes (Other)
  Sender: FDA-Public Use
  Company Number: US-SANOFI-AVENTIS-2012SA025165

PATIENT
  Age: 55 Year
  Sex: Female
  Weight: 54.5 kg

DRUGS (8)
  1. FLECAINIDE ACETATE [Suspect]
  2. TAMBOCOR [Concomitant]
     Indication: ATRIAL FIBRILLATION
     Dates: start: 20120305, end: 20120411
  3. ASPIRIN [Concomitant]
  4. POTASSIUM CHLORIDE [Concomitant]
  5. ALLEGRA [Suspect]
     Indication: SEASONAL ALLERGY
     Route: 048
     Dates: start: 20120309, end: 20120319
  6. NEBIVOLOL [Concomitant]
     Dates: start: 20111001
  7. ALLEGRA [Suspect]
     Route: 048
     Dates: start: 20120309, end: 20120319
  8. NASONEX [Concomitant]
     Route: 055

REACTIONS (4)
  - HYPOGLYCAEMIA [None]
  - FEELING ABNORMAL [None]
  - OFF LABEL USE [None]
  - ASTHENIA [None]
